FAERS Safety Report 5235926-2 (Version None)
Quarter: 2007Q1

REPORT INFORMATION
  Report Type: 
  Country: None (occurrence: None)
  Receive Date: 20070212
  Receipt Date: 20070130
  Transmission Date: 20070707
  Serious: Yes (Hospitalization)
  Sender: FDA-Public Use
  Company Number: PHHO2006DE20292

PATIENT
  Age: 74 Year
  Sex: Male
  Weight: 91 kg

DRUGS (3)
  1. SIMULECT [Suspect]
     Indication: CORNEAL OPERATION
     Dosage: 20 MG, ONCE/SINGLE
     Route: 042
     Dates: start: 20041025, end: 20041025
  2. SIMULECT [Suspect]
     Dosage: 20 MG, ONCE/SINGLE
     Route: 042
     Dates: start: 20050425, end: 20050425
  3. CYCLOSPORINE [Suspect]
     Indication: RENAL TRANSPLANT

REACTIONS (3)
  - DIABETES MELLITUS INADEQUATE CONTROL [None]
  - GASTROENTERITIS [None]
  - HYPERGLYCAEMIA [None]
